FAERS Safety Report 4553714-7 (Version None)
Quarter: 2004Q4

REPORT INFORMATION
  Report Type: 
  Country: None (occurrence: None)
  Receive Date: 20041230
  Receipt Date: 20040727
  Transmission Date: 20050328
  Serious: Yes (Hospitalization)
  Sender: FDA-Public Use
  Company Number: 04-07-1077

PATIENT
  Age: 36 Year
  Sex: Male

DRUGS (4)
  1. CLOZAPINE [Suspect]
     Dosage: 300-450MG QD ORAL
     Route: 048
     Dates: start: 20030501
  2. ABILIFY [Concomitant]
  3. PAROXETINE HCL [Concomitant]
  4. METFORMIN HCL [Concomitant]

REACTIONS (1)
  - TREATMENT NONCOMPLIANCE [None]
